FAERS Safety Report 5730683-5 (Version None)
Quarter: 2008Q2

REPORT INFORMATION
  Report Type: 
  Country: None (occurrence: None)
  Receive Date: 20080507
  Receipt Date: 20080425
  Transmission Date: 20081010
  Serious: Yes (Other)
  Sender: FDA-Public Use
  Company Number: US-PFIZER INC-2008037181

PATIENT
  Sex: Female
  Weight: 63.5 kg

DRUGS (2)
  1. LYRICA [Suspect]
     Indication: FIBROMYALGIA
     Route: 048
     Dates: start: 20071026, end: 20071126
  2. EFFEXOR [Concomitant]
     Route: 048

REACTIONS (3)
  - BLISTER [None]
  - LOCAL SWELLING [None]
  - LYMPH GLAND INFECTION [None]
